FAERS Safety Report 21960015 (Version 2)
Quarter: 2023Q1

REPORT INFORMATION
  Report Type: Spontaneous
  Country: CN (occurrence: CN)
  Receive Date: 20230206
  Receipt Date: 20230223
  Transmission Date: 20230417
  Serious: Yes (Other)
  Sender: FDA-Public Use
  Company Number: CN-SUN PHARMACEUTICAL INDUSTRIES LTD-2023R1-377103

PATIENT
  Age: 76 Year
  Sex: Male

DRUGS (6)
  1. DEXAMETHASONE [Suspect]
     Active Substance: DEXAMETHASONE
     Indication: Eczema
     Dosage: 40 MILLIGRAM, QD
     Route: 065
  2. PANTOPRAZOLE [Suspect]
     Active Substance: PANTOPRAZOLE
     Indication: Eczema
     Dosage: 40 MILLIGRAM, BID
  3. FLUCLOXACILLIN [Suspect]
     Active Substance: FLUCLOXACILLIN
     Indication: Eczema
     Dosage: 1.0 GRAM, TID
  4. TORSEMIDE [Suspect]
     Active Substance: TORSEMIDE
     Indication: Eczema
     Dosage: 20 MILLIGRAM, BID
     Route: 065
  5. GLUTATHIONE [Suspect]
     Active Substance: GLUTATHIONE
     Indication: Eczema
     Dosage: 2.4 GRAM, QD
     Route: 065
  6. ALANYL GLUTAMINE [Suspect]
     Active Substance: ALANYL GLUTAMINE
     Indication: Eczema
     Dosage: 10 G/50 ML,QD
     Route: 065

REACTIONS (1)
  - Drug ineffective [Unknown]
